FAERS Safety Report 20925893 (Version 2)
Quarter: 2022Q2

REPORT INFORMATION
  Report Type: Spontaneous
  Country: AU (occurrence: AU)
  Receive Date: 20220607
  Receipt Date: 20220608
  Transmission Date: 20220720
  Serious: No
  Sender: FDA-Public Use
  Company Number: AU-BAXTER-2022BAX011186

PATIENT

DRUGS (1)
  1. SEVOFLURANE [Suspect]
     Active Substance: SEVOFLURANE

REACTIONS (2)
  - Accidental exposure to product [Unknown]
  - Dizziness [Unknown]

NARRATIVE: CASE EVENT DATE: 20220512
